FAERS Safety Report 10730028 (Version 1)
Quarter: 2015Q1

REPORT INFORMATION
  Report Type: Spontaneous
  Country: US (occurrence: None)
  Receive Date: 20150120
  Receipt Date: 20150120
  Transmission Date: 20150721
  Serious: Yes (Other)
  Sender: FDA-Public Use
  Company Number: None

PATIENT
  Age: 37 Year
  Sex: Female
  Weight: 68.04 kg

DRUGS (3)
  1. EQUATE NASAL ORIGINAL [Suspect]
     Active Substance: OXYMETAZOLINE HYDROCHLORIDE
     Indication: NASOPHARYNGITIS
     Dosage: 2 SPRAYS/EACH NOSTRIL?AS NEEDED?INHALATION
     Route: 055
     Dates: start: 20030101, end: 20110101
  2. EQUATE NASAL ORIGINAL [Suspect]
     Active Substance: OXYMETAZOLINE HYDROCHLORIDE
     Indication: SINUS DISORDER
     Dosage: 2 SPRAYS/EACH NOSTRIL?AS NEEDED?INHALATION
     Route: 055
     Dates: start: 20030101, end: 20110101
  3. EQUATE NASAL ORIGINAL [Suspect]
     Active Substance: OXYMETAZOLINE HYDROCHLORIDE
     Dosage: 2 SPRAYS/EACH NOSTRIL?AS NEEDED?INHALATION
     Route: 055
     Dates: start: 20030101, end: 20110101

REACTIONS (2)
  - Drug dependence [None]
  - Anosmia [None]

NARRATIVE: CASE EVENT DATE: 20150118
